FAERS Safety Report 4608503-1 (Version None)
Quarter: 2005Q1

REPORT INFORMATION
  Report Type: 
  Country: None (occurrence: None)
  Receive Date: 20050315
  Receipt Date: 20050304
  Transmission Date: 20050727
  Serious: Yes (Hospitalization)
  Sender: FDA-Public Use
  Company Number: 200511904US

PATIENT
  Sex: Male
  Weight: 100 kg

DRUGS (4)
  1. LOVENOX [Suspect]
     Indication: CARDIAC DISORDER
  2. LOVENOX [Suspect]
     Indication: DEEP VEIN THROMBOSIS
  3. LOVENOX [Suspect]
     Indication: PULMONARY EMBOLISM
  4. ASPIRIN [Concomitant]
     Dosage: DOSE: UNK

REACTIONS (6)
  - ABDOMINAL HAEMATOMA [None]
  - CHRONIC OBSTRUCTIVE PULMONARY DISEASE [None]
  - DISSEMINATED INTRAVASCULAR COAGULATION [None]
  - HYPOVOLAEMIA [None]
  - RENAL FAILURE [None]
  - RESPIRATORY FAILURE [None]
